FAERS Safety Report 15744429 (Version 1)
Quarter: 2018Q4

REPORT INFORMATION
  Report Type: Spontaneous
  Country: US (occurrence: US)
  Receive Date: 20181205
  Receipt Date: 20181205
  Transmission Date: 20190205
  Serious: No
  Sender: FDA-Public Use
  Company Number: None

PATIENT
  Age: 41 Year
  Sex: Female

DRUGS (1)
  1. BOTOX [Suspect]
     Active Substance: ONABOTULINUMTOXINA
     Dates: start: 201805

REACTIONS (5)
  - Injection site pain [None]
  - Injection site swelling [None]
  - Muscle tightness [None]
  - Headache [None]
  - Injection site discomfort [None]

NARRATIVE: CASE EVENT DATE: 20181004
